FAERS Safety Report 6304860-9 (Version None)
Quarter: 2009Q3

REPORT INFORMATION
  Report Type: 
  Country: None (occurrence: None)
  Receive Date: 20090811
  Receipt Date: 20090804
  Transmission Date: 20100115
  Serious: Yes (Death)
  Sender: FDA-Public Use
  Company Number: CN-GENENTECH-265729

PATIENT
  Sex: Male

DRUGS (3)
  1. BEVACIZUMAB [Suspect]
     Indication: COLORECTAL CANCER METASTATIC
     Dosage: 330 MG, Q2W
     Route: 042
     Dates: start: 20080204
  2. IRINOTECAN HCL [Suspect]
     Indication: COLORECTAL CANCER METASTATIC
     Dosage: 169 MG, 1/WEEK
     Route: 042
     Dates: start: 20080204
  3. FLUOROURACIL [Suspect]
     Indication: COLORECTAL CANCER METASTATIC
     Dosage: 676 MG, 1/WEEK
     Route: 042
     Dates: start: 20080204

REACTIONS (1)
  - SMALL INTESTINAL OBSTRUCTION [None]
